FAERS Safety Report 22357064 (Version 1)
Quarter: 2023Q2

REPORT INFORMATION
  Report Type: Spontaneous
  Country: US (occurrence: US)
  Receive Date: 20230523
  Receipt Date: 20230523
  Transmission Date: 20230721
  Serious: Yes (Other)
  Sender: FDA-Public Use
  Company Number: US-JNJFOC-20230541226

PATIENT
  Sex: Female

DRUGS (1)
  1. SPRAVATO [Suspect]
     Active Substance: ESKETAMINE
     Indication: Product used for unknown indication
     Dates: start: 202305

REACTIONS (4)
  - Anger [Unknown]
  - Rhinorrhoea [Unknown]
  - Upper-airway cough syndrome [Unknown]
  - Anxiety [Unknown]

NARRATIVE: CASE EVENT DATE: 20230501
